FAERS Safety Report 7167295-5 (Version None)
Quarter: 2010Q4

REPORT INFORMATION
  Report Type: 
  Country: None (occurrence: None)
  Receive Date: 20101216
  Receipt Date: 20101209
  Transmission Date: 20110411
  Serious: Yes (Death)
  Sender: FDA-Public Use
  Company Number: AU-NAPPMUNDI-GBR-2010-0007493

PATIENT
  Age: 60 Year
  Sex: Female

DRUGS (5)
  1. MORPHINE SULFATE [Suspect]
     Indication: PRODUCT USED FOR UNKNOWN INDICATION
  2. AMITRIPTYLINE [Suspect]
  3. VALPROIC ACID [Suspect]
  4. OXAZEPAM [Suspect]
  5. SERTRALINE [Suspect]

REACTIONS (2)
  - DEATH [None]
  - DRUG INTERACTION [None]
